FAERS Safety Report 13441125 (Version 1)
Quarter: 2017Q2

REPORT INFORMATION
  Report Type: Report from Study
  Country: ZA (occurrence: ZA)
  Receive Date: 20170414
  Receipt Date: 20170414
  Transmission Date: 20170830
  Serious: Yes (Other)
  Sender: FDA-Public Use
  Company Number: PHHY2017ZA052020

PATIENT
  Sex: Female

DRUGS (13)
  1. BEZAFIBRATE SANDOZ [Suspect]
     Active Substance: BEZAFIBRATE
     Indication: BLOOD CHOLESTEROL
     Dosage: 400 MG, UNK
     Route: 048
     Dates: start: 20161012
  2. SPIRACTIN [Concomitant]
     Active Substance: SPIRONOLACTONE
     Indication: HYPERTENSION
     Dosage: 25 MG, UNK
     Route: 048
     Dates: start: 20161012
  3. VITAMINS NOS [Concomitant]
     Active Substance: VITAMINS
     Indication: BLOOD CHOLESTEROL
     Dosage: 10 MG, UNK
     Route: 048
     Dates: start: 20161012
  4. BAYER ASPIRIN [Concomitant]
     Active Substance: ASPIRIN
     Indication: ANTICOAGULANT THERAPY
     Dosage: 100 MG, UNK
     Route: 048
     Dates: start: 20161012
  5. PURICOS [Concomitant]
     Active Substance: ALLOPURINOL
     Indication: GOUT
     Dosage: 300 MG, UNK
     Route: 048
     Dates: start: 20161012
  6. DORMONOCT [Concomitant]
     Active Substance: LOPRAZOLAM
     Indication: INSOMNIA
     Dosage: 20 MG, UNK
     Route: 048
     Dates: start: 20161012
  7. ELTROXIN [Concomitant]
     Active Substance: LEVOTHYROXINE
     Indication: THYROID DISORDER
     Dosage: 100 UG, UNK
     Route: 048
     Dates: start: 20161012
  8. CARVETREND [Concomitant]
     Active Substance: CARVEDILOL
     Indication: HYPERTENSION
     Dosage: 25 MG, UNK
     Route: 048
     Dates: start: 20161012
  9. CARDURAXL [Concomitant]
     Active Substance: DOXAZOSIN MESYLATE
     Indication: PROSTATIC DISORDER
     Dosage: 8 MG, UNK
     Route: 048
     Dates: start: 20161012
  10. ETHIPRAMINE [Concomitant]
     Indication: ENURESIS
     Dosage: 10 MG, UNK
     Route: 048
     Dates: start: 20161012
  11. MACRODANTIN [Concomitant]
     Active Substance: NITROFURANTOIN
     Indication: PROPHYLAXIS
     Dosage: 100 MG, UNK
     Route: 048
     Dates: start: 20161012
  12. VERAHEXAL RR [Suspect]
     Active Substance: VERAPAMIL HYDROCHLORIDE
     Indication: HYPERTENSION
     Dosage: 240 MG, UNK
     Route: 048
     Dates: start: 20161012
  13. ALTOSEC [Concomitant]
     Active Substance: OMEPRAZOLE
     Indication: ULCER
     Dosage: 20 MG, UNK
     Route: 048
     Dates: start: 20161012

REACTIONS (2)
  - Urinary incontinence [Recovering/Resolving]
  - Bladder prolapse [Recovering/Resolving]
